FAERS Safety Report 7855453-3 (Version None)
Quarter: 2011Q4

REPORT INFORMATION
  Report Type: 
  Country: None (occurrence: None)
  Receive Date: 20111026
  Receipt Date: 20111012
  Transmission Date: 20120403
  Serious: Yes (Hospitalization, Other)
  Sender: FDA-Public Use
  Company Number: JP-PFIZER INC-2011255844

PATIENT
  Age: 52 Year
  Sex: Female

DRUGS (3)
  1. ACTOS [Concomitant]
     Dosage: UNK
     Route: 048
     Dates: start: 20110114, end: 20110603
  2. URSO 250 [Concomitant]
     Indication: HYPERCHOLESTEROLAEMIA
     Dosage: 300 MG, DAILY
     Route: 048
     Dates: start: 20100820, end: 20110603
  3. LIPITOR [Suspect]
     Indication: HYPERCHOLESTEROLAEMIA
     Dosage: 10 MG, DAILY
     Route: 048
     Dates: start: 20100820, end: 20110603

REACTIONS (5)
  - GLYCOSYLATED HAEMOGLOBIN INCREASED [None]
  - DEHYDRATION [None]
  - LOW DENSITY LIPOPROTEIN INCREASED [None]
  - RHABDOMYOLYSIS [None]
  - MUSCULAR WEAKNESS [None]
